FAERS Safety Report 18475476 (Version 2)
Quarter: 2020Q4

REPORT INFORMATION
  Report Type: Report from Study
  Country: None (occurrence: JP)
  Receive Date: 20201106
  Receipt Date: 20201113
  Transmission Date: 20210114
  Serious: Yes (Hospitalization)
  Sender: FDA-Public Use
  Company Number: JP-ABBVIE-20P-087-3632247-00

PATIENT
  Age: 77 Year
  Sex: Female
  Weight: 34.6 kg

DRUGS (25)
  1. VENETOCLAX. [Suspect]
     Active Substance: VENETOCLAX
     Route: 048
     Dates: start: 20170622, end: 20170622
  2. POLAPREZINC [Concomitant]
     Active Substance: POLAPREZINC
     Indication: PROPHYLAXIS
     Route: 048
     Dates: start: 20110808
  3. NASONEX [Concomitant]
     Active Substance: MOMETASONE FUROATE
     Indication: RHINITIS ALLERGIC
     Route: 045
     Dates: start: 20171227
  4. WHITE PETROLATUM [Concomitant]
     Active Substance: PETROLATUM
     Indication: SKIN DISORDER PROPHYLAXIS
     Dosage: OPTIMAL DOSE
     Route: 061
     Dates: start: 20180405
  5. ALFACALCIDOL [Concomitant]
     Active Substance: ALFACALCIDOL
     Indication: OSTEOPOROSIS
     Route: 048
     Dates: start: 20120901
  6. MINODRONIC ACID HYDRATE [Concomitant]
     Active Substance: MINODRONIC ACID
     Indication: OSTEOPOROSIS
     Route: 048
     Dates: start: 20120901
  7. TERPERAN [Concomitant]
     Active Substance: METOCLOPRAMIDE HYDROCHLORIDE
     Indication: PROPHYLAXIS OF NAUSEA AND VOMITING
     Route: 048
     Dates: start: 20170715
  8. VENETOCLAX. [Suspect]
     Active Substance: VENETOCLAX
     Indication: HAEMATOLOGICAL MALIGNANCY
     Route: 048
     Dates: start: 20170620, end: 20170620
  9. AMLODIPINE BESILATE [Concomitant]
     Active Substance: AMLODIPINE BESYLATE
     Indication: HYPERTENSION
     Route: 048
     Dates: start: 20110808
  10. MAGNESIUM OXIDE. [Concomitant]
     Active Substance: MAGNESIUM OXIDE
     Indication: CONSTIPATION PROPHYLAXIS
     Route: 048
     Dates: start: 20170625
  11. HYALEIN [Concomitant]
     Active Substance: HYALURONATE SODIUM
     Indication: DRY EYE
     Dosage: GTT
     Route: 047
     Dates: start: 20170415
  12. BRONUCK [Concomitant]
     Active Substance: BROMFENAC SODIUM
     Indication: CONJUNCTIVITIS ALLERGIC
     Route: 047
     Dates: start: 20170720
  13. SODIUM GUALENATE HYDRATE [Concomitant]
     Active Substance: SODIUM GUALENATE MONOHYDRATE
     Indication: INFECTION PROPHYLAXIS
     Dosage: GARGLE
     Dates: start: 20170604
  14. PATANOL [Concomitant]
     Active Substance: OLOPATADINE HYDROCHLORIDE
     Indication: CONJUNCTIVITIS ALLERGIC
     Route: 047
     Dates: start: 20170415
  15. TAKECAB [Concomitant]
     Active Substance: VONOPRAZAN FUMARATE
     Indication: GASTRITIS PROPHYLAXIS
     Route: 048
     Dates: start: 20180207
  16. SHAKUYAKUKANZOTO [Concomitant]
     Active Substance: HERBALS
     Indication: MUSCLE SPASMS
     Route: 048
     Dates: start: 20180207
  17. CEFCAPENE PIVOXIL HYDROCHLORIDE HYDRATE [Concomitant]
     Active Substance: CEFCAPENE PIVOXIL HYDROCHLORIDE HYDRATE
     Indication: INFECTION PROPHYLAXIS
     Route: 048
     Dates: start: 20180817
  18. ARASENA-A [Concomitant]
     Active Substance: VIDARABINE
     Indication: ORAL HERPES
     Route: 061
     Dates: start: 20170611
  19. TEPRENONE [Concomitant]
     Active Substance: TEPRENONE
     Indication: CHRONIC GASTRITIS
     Route: 048
     Dates: start: 20180425
  20. VENETOCLAX. [Suspect]
     Active Substance: VENETOCLAX
     Route: 048
     Dates: start: 20170623
  21. AZACITIDINE. [Suspect]
     Active Substance: AZACITIDINE
     Indication: HAEMATOLOGICAL MALIGNANCY
     Route: 042
     Dates: start: 20170619, end: 20200901
  22. LEVOCETIRIZINE HYDROCHLORIDE [Concomitant]
     Active Substance: LEVOCETIRIZINE HYDROCHLORIDE
     Indication: PRURITUS
     Route: 048
     Dates: start: 20190105
  23. HEPARINOID [Concomitant]
     Active Substance: CHONDROITIN SULFATE (BOVINE)
     Indication: DRY SKIN PROPHYLAXIS
     Route: 061
     Dates: start: 20190125
  24. MIYA-BM [Concomitant]
     Active Substance: CLOSTRIDIUM BUTYRICUM SPORES STRAIN M-55
     Indication: GASTROINTESTINAL MOTILITY DISORDER
     Route: 048
     Dates: start: 20180404
  25. HEPARINOID SPRAY [Concomitant]
     Indication: DRY SKIN PROPHYLAXIS
     Route: 061
     Dates: start: 20181207

REACTIONS (1)
  - Acute myeloid leukaemia [Not Recovered/Not Resolved]

NARRATIVE: CASE EVENT DATE: 20201016
